FAERS Safety Report 9988677 (Version 2)
Quarter: 2014Q1

REPORT INFORMATION
  Report Type: Spontaneous
  Country: US (occurrence: US)
  Receive Date: 20140310
  Receipt Date: 20140310
  Transmission Date: 20141002
  Serious: Yes (Hospitalization, Other)
  Sender: FDA-Public Use
  Company Number: US-BEH-2012033532

PATIENT
  Age: 79 Year
  Sex: Female
  Weight: 71 kg

DRUGS (16)
  1. PRIVIGEN [Suspect]
     Indication: CHRONIC INFLAMMATORY DEMYELINATING POLYRADICULONEUROPATHY
     Dosage: DIVIDED OVER 2 DAYS EVERY THREE WEEKS, OVER 4-6 HOURS.
     Dates: start: 20121001, end: 20121002
  2. PRIVIGEN [Suspect]
     Route: 042
     Dates: start: 20140205
  3. PRIVIGEN [Suspect]
     Route: 040
     Dates: start: 20140224
  4. TRAMADOL [Concomitant]
  5. RESTORIL [Concomitant]
  6. DIPHENHYDRAMINE [Concomitant]
     Indication: PREMEDICATION
  7. HEPARIN [Concomitant]
  8. NORMAL SALINE [Concomitant]
  9. SODIUM CHLORIDE [Concomitant]
  10. EPI-PEN [Concomitant]
     Indication: PREMEDICATION
  11. SYNTHROID [Concomitant]
  12. LOVAZA [Concomitant]
  13. TOPROL XL [Concomitant]
  14. NEXIUM [Concomitant]
  15. TEMAZEPAM [Concomitant]
  16. WELCHOL [Concomitant]

REACTIONS (8)
  - Blood culture positive [Unknown]
  - Rash papular [Recovered/Resolved]
  - Rash erythematous [Recovered/Resolved]
  - Feeling cold [Recovered/Resolved]
  - Asthenia [Recovered/Resolved]
  - Tachycardia [Recovered/Resolved]
  - Dizziness [Recovered/Resolved]
  - Chills [Recovered/Resolved]
